FAERS Safety Report 8894588 (Version 1)
Quarter: 2012Q4

REPORT INFORMATION
  Report Type: 
  Country: DE (occurrence: DE)
  Receive Date: 20121108
  Receipt Date: 20121108
  Transmission Date: 20130627
  Serious: Yes (Other)
  Sender: FDA-Public Use
  Company Number: DE-009507513-1211DEU001537

PATIENT
  Age: 45 Year
  Sex: Male
  Weight: 71 kg

DRUGS (6)
  1. ZOCOR 10MG [Suspect]
     Indication: CORONARY ARTERY DISEASE
     Dosage: 40 mg, qd
     Route: 048
     Dates: start: 20120329, end: 20120422
  2. ZOCOR 10MG [Suspect]
     Dosage: 20 mg, qd
     Dates: start: 20120423, end: 20120430
  3. BRILIQUE [Suspect]
     Indication: CORONARY ARTERIAL STENT INSERTION
     Dosage: 180 mg, qd
     Route: 048
     Dates: start: 20120329
  4. METOPROLOL [Concomitant]
     Indication: HYPERTENSION
     Dosage: 95 mg, qd
     Route: 048
     Dates: start: 20120329
  5. ASPIRIN [Concomitant]
     Indication: CORONARY ARTERY DISEASE
     Dosage: 100 mg, qd
     Route: 048
     Dates: start: 20120329
  6. RAMIPRIL [Concomitant]
     Indication: HYPERTENSION
     Dosage: 5 mg, qd

REACTIONS (4)
  - Drug level increased [Recovering/Resolving]
  - Blood creatine phosphokinase increased [Recovering/Resolving]
  - Transaminases increased [Recovering/Resolving]
  - Pain in extremity [Recovering/Resolving]
